FAERS Safety Report 14155338 (Version 10)
Quarter: 2022Q1

REPORT INFORMATION
  Report Type: Report from Study
  Country: CO (occurrence: CO)
  Receive Date: 20171103
  Receipt Date: 20220115
  Transmission Date: 20220423
  Serious: Yes (Life-Threatening, Hospitalization)
  Sender: FDA-Public Use
  Company Number: PHHY2017CO129273

PATIENT
  Age: 10 Year
  Sex: Female
  Weight: 25 kg

DRUGS (5)
  1. EXJADE [Suspect]
     Active Substance: DEFERASIROX
     Indication: Iron overload
     Dosage: 500 MG, QD
     Route: 048
     Dates: start: 20160627
  2. JADENU [Suspect]
     Active Substance: DEFERASIROX
     Indication: Thalassaemia
     Dosage: 360 MG, QD (TABLET)
     Route: 048
     Dates: start: 20150316
  3. JADENU [Suspect]
     Active Substance: DEFERASIROX
     Dosage: 360 MG, BID (TABLET)
     Route: 048
  4. JADENU [Suspect]
     Active Substance: DEFERASIROX
     Dosage: 720 MG, QD (TABLET)
     Route: 048
  5. ACETAMINOPHEN [Concomitant]
     Active Substance: ACETAMINOPHEN
     Indication: Product used for unknown indication
     Dosage: UNK
     Route: 065

REACTIONS (11)
  - Haemoglobin decreased [Unknown]
  - Gait inability [Unknown]
  - Dizziness [Unknown]
  - Headache [Unknown]
  - Hypotension [Unknown]
  - General physical health deterioration [Unknown]
  - Pain in extremity [Unknown]
  - Bone pain [Unknown]
  - Splenomegaly [Unknown]
  - Pyrexia [Unknown]
  - Inappropriate schedule of product administration [Unknown]

NARRATIVE: CASE EVENT DATE: 20170827
